FAERS Safety Report 7921527-1 (Version None)
Quarter: 2011Q4

REPORT INFORMATION
  Report Type: 
  Country: None (occurrence: None)
  Receive Date: 20111117
  Receipt Date: 20111115
  Transmission Date: 20120403
  Serious: Yes (Death, Hospitalization)
  Sender: FDA-Public Use
  Company Number: RO-B.I. PHARMACEUTICALS,INC./RIDGEFIELD-2011-AP-00636AP

PATIENT
  Age: 65 Year
  Sex: Female
  Weight: 60 kg

DRUGS (5)
  1. RAMIPRIL [Concomitant]
     Dosage: 10 MG
     Route: 048
  2. INDAPAMIDUM [Concomitant]
     Dosage: 1.5 MG
     Route: 048
  3. PRADAXA [Suspect]
     Indication: ATRIAL FIBRILLATION
     Dosage: 300 MG
     Route: 048
     Dates: start: 20111104, end: 20111108
  4. DIGOXIN [Concomitant]
     Dosage: 0.25 MG
     Route: 048
  5. CARVEDILOL [Concomitant]
     Dosage: 6.25 MG
     Route: 048

REACTIONS (2)
  - UPPER GASTROINTESTINAL HAEMORRHAGE [None]
  - ISCHAEMIC STROKE [None]
